FAERS Safety Report 8946775 (Version 1)
Quarter: 2012Q4

REPORT INFORMATION
  Report Type: 
  Country: US (occurrence: US)
  Receive Date: 20121204
  Receipt Date: 20121204
  Transmission Date: 20130627
  Serious: No
  Sender: FDA-Public Use
  Company Number: US-AMGEN-USASP2012071074

PATIENT
  Age: 53 Year
  Sex: Male
  Weight: 92.06 kg

DRUGS (4)
  1. ENBREL [Suspect]
     Indication: RHEUMATOID ARTHRITIS
     Dosage: 50 mg, qwk
     Route: 058
     Dates: start: 20111215
  2. GABAPENTIN [Concomitant]
     Indication: NEUROPATHY PERIPHERAL
     Dosage: 300 mg, tid
     Route: 048
  3. LORTAB                             /00607101/ [Concomitant]
     Indication: PAIN
     Dosage: 10 mg, 1-2 tid prn
     Route: 048
  4. ALLOPURINOL [Concomitant]
     Indication: GOUT
     Dosage: 300 mg, qd
     Route: 048

REACTIONS (2)
  - Asthenia [Not Recovered/Not Resolved]
  - Viral infection [Recovered/Resolved]
